FAERS Safety Report 9092573 (Version 1)
Quarter: 2013Q1

REPORT INFORMATION
  Report Type: Spontaneous
  Country: FR (occurrence: FR)
  Receive Date: 20130131
  Receipt Date: 20130131
  Transmission Date: 20140127
  Serious: Yes (Hospitalization, Other)
  Sender: FDA-Public Use
  Company Number: FR-UCBSA-076935

PATIENT
  Age: 82 Year
  Sex: Female

DRUGS (10)
  1. KEPPRA [Suspect]
     Route: 048
     Dates: start: 201111, end: 201211
  2. KEPPRA [Suspect]
     Route: 048
     Dates: start: 201211, end: 201212
  3. DEPAMIDE [Concomitant]
  4. LOXEN LP [Concomitant]
  5. EFFEXOR LP [Concomitant]
  6. XANAX [Concomitant]
  7. ZOLPIDEM [Concomitant]
     Dosage: 1TABLET AT BEDTIME
  8. INIPOMP [Concomitant]
     Dosage: 40 MG IN THE EVENING
  9. AERIUS [Concomitant]
  10. PREVISCAN [Concomitant]
     Dosage: 0.75 TABLETS THE ODD DAY

REACTIONS (5)
  - Encephalopathy [Recovered/Resolved]
  - Depression [Unknown]
  - Suicidal ideation [Unknown]
  - Confusional state [Recovering/Resolving]
  - Convulsion [Unknown]
